FAERS Safety Report 9161595 (Version 3)
Quarter: 2013Q2

REPORT INFORMATION
  Report Type: Spontaneous
  Country: US (occurrence: US)
  Receive Date: 20130313
  Receipt Date: 20130518
  Transmission Date: 20140414
  Serious: Yes (Death, Other)
  Sender: FDA-Public Use
  Company Number: US-MERCK-1303USA004206

PATIENT
  Age: 61 Year
  Sex: Male

DRUGS (1)
  1. JANUVIA [Suspect]
     Indication: DIABETES MELLITUS
     Dosage: 100 MG /ONCE DAILY
     Route: 048
     Dates: start: 2008, end: 201209

REACTIONS (4)
  - Death [Fatal]
  - Pancreatic carcinoma [Not Recovered/Not Resolved]
  - Pulmonary embolism [Unknown]
  - Metastases to lung [Unknown]
